FAERS Safety Report 5988409-6 (Version None)
Quarter: 2008Q4

REPORT INFORMATION
  Report Type: 
  Country: None (occurrence: None)
  Receive Date: 20081204
  Receipt Date: 20081121
  Transmission Date: 20090506
  Serious: Yes (Other)
  Sender: FDA-Public Use
  Company Number: 2008002703

PATIENT
  Age: 62 Year
  Sex: Female

DRUGS (1)
  1. TARCEVA [Suspect]
     Indication: LUNG NEOPLASM MALIGNANT
     Dosage: (150 MG,QD), ORAL
     Route: 048
     Dates: start: 20060220, end: 20080612

REACTIONS (4)
  - BRONCHITIS [None]
  - BURNING SENSATION MUCOSAL [None]
  - PERICARDIAL EFFUSION [None]
  - VIRAL TRACHEITIS [None]
